FAERS Safety Report 10610238 (Version 3)
Quarter: 2015Q1

REPORT INFORMATION
  Report Type: Spontaneous
  Country: JP (occurrence: None)
  Receive Date: 20141124
  Receipt Date: 20150211
  Transmission Date: 20150720
  Serious: Yes (Other)
  Sender: FDA-Public Use
  Company Number: KAD201411-001495

PATIENT
  Age: 63 Year
  Sex: Female
  Weight: 46.7 kg

DRUGS (6)
  1. TACROLIMUS. [Concomitant]
     Active Substance: TACROLIMUS
  2. PREDNISOLONE. [Concomitant]
     Active Substance: PREDNISOLONE
  3. MYCOPHENOLATE MOFETIL. [Concomitant]
     Active Substance: MYCOPHENOLATE MOFETIL
  4. PEGYLATED INTERFERON NOS [Suspect]
     Active Substance: PEGINTERFERON ALFA-2A OR PEGINTERFERON ALFA-2B OR PEGINTERFERON BETA-1A OR PEGINTERFERON LAMBDA-1A
     Indication: HEPATITIS C
     Dates: start: 20070509
  5. RIBAVIRIN (RIBAVIRIN) [Suspect]
     Active Substance: RIBAVIRIN
     Indication: HEPATITIS C
     Dates: start: 20070509
  6. METHYLPREDNISOLONE SUCCINATE [Concomitant]

REACTIONS (7)
  - Hepatic neoplasm [None]
  - Hepatitis B [None]
  - Autoimmune hepatitis [None]
  - Condition aggravated [None]
  - Hepatic necrosis [None]
  - Thrombocytopenia [None]
  - Hepatic fibrosis [None]
